FAERS Safety Report 9036759 (Version 1)
Quarter: 2013Q1

REPORT INFORMATION
  Report Type: Spontaneous
  Country: US (occurrence: US)
  Receive Date: 20130129
  Receipt Date: 20130129
  Transmission Date: 20140127
  Serious: No
  Sender: FDA-Public Use
  Company Number: US-ABBOTT-12P-163-0892681-00

PATIENT
  Age: 35 Year
  Sex: Female

DRUGS (4)
  1. HUMIRA 40 MG/0.8 ML PEN [Suspect]
     Indication: PSORIATIC ARTHROPATHY
     Dates: start: 2011
  2. AMBIEN [Concomitant]
     Indication: INSOMNIA
  3. UNKNOWN MEDICATION [Concomitant]
     Indication: ANXIETY
  4. UNKNOWN MEDICATION [Concomitant]
     Indication: AFFECTIVE DISORDER

REACTIONS (2)
  - Skin lesion [Not Recovered/Not Resolved]
  - Parapsoriasis [Not Recovered/Not Resolved]
